FAERS Safety Report 6981785-7 (Version None)
Quarter: 2010Q3

REPORT INFORMATION
  Report Type: 
  Country: None (occurrence: None)
  Receive Date: 20100914
  Receipt Date: 20091026
  Transmission Date: 20110219
  Serious: No
  Sender: FDA-Public Use
  Company Number: US-PFIZER INC-2009263046

PATIENT
  Age: 62 Year
  Sex: Female

DRUGS (6)
  1. LYRICA [Suspect]
     Dosage: UNK
  2. LUNESTA [Suspect]
     Indication: INSOMNIA
     Dosage: 3 MG, QHS
     Route: 048
  3. DIPHENHYDRAMINE [Concomitant]
     Dosage: UNK
  4. RISPERIDONE [Concomitant]
     Dosage: UNK
  5. SERTRALINE [Concomitant]
     Dosage: UNK
  6. MIRTAZAPINE [Concomitant]
     Dosage: UNK

REACTIONS (1)
  - DRUG SCREEN POSITIVE [None]
